FAERS Safety Report 5406173-6 (Version None)
Quarter: 2007Q3

REPORT INFORMATION
  Report Type: 
  Country: None (occurrence: None)
  Receive Date: 20070801
  Receipt Date: 20070720
  Transmission Date: 20080115
  Serious: Yes (Other)
  Sender: FDA-Public Use
  Company Number: 2007326343

PATIENT
  Sex: Male

DRUGS (1)
  1. MINOXIDIL [Suspect]
     Indication: ALOPECIA
     Dosage: TWICE DAILY (2 IN 1 D), TOPICAL
     Route: 061

REACTIONS (1)
  - HYPERSENSITIVITY [None]
